FAERS Safety Report 17237314 (Version 18)
Quarter: 2022Q1

REPORT INFORMATION
  Report Type: Spontaneous
  Country: US (occurrence: US)
  Receive Date: 20200106
  Receipt Date: 20220301
  Transmission Date: 20220424
  Serious: No
  Sender: FDA-Public Use
  Company Number: US-PFIZER INC-2020001753

PATIENT
  Age: 57 Year
  Sex: Female

DRUGS (12)
  1. XELJANZ [Suspect]
     Active Substance: TOFACITINIB CITRATE
     Indication: Lichen planopilaris
     Dosage: 5 MG, UNK (QUANTITY 90 FOR DAYS SUPPLY 30)
  2. XELJANZ [Suspect]
     Active Substance: TOFACITINIB CITRATE
     Indication: Alopecia
     Dosage: 15 MG, DAILY (TWO TABLETS IN THE MORNING AND ONE TABLET IN THE EVENING)
  3. XELJANZ [Suspect]
     Active Substance: TOFACITINIB CITRATE
     Dosage: 15 MG, DAILY (3 TABLETS)
  4. XELJANZ [Suspect]
     Active Substance: TOFACITINIB CITRATE
     Dosage: 5 MG, 2X/DAY
  5. XELJANZ [Suspect]
     Active Substance: TOFACITINIB CITRATE
     Dosage: 15 MG, DAILY (I TAKE 15 MG PER DAY)
  6. XELJANZ [Suspect]
     Active Substance: TOFACITINIB CITRATE
     Dosage: 15 MG, 3X/DAY
  7. XELJANZ [Suspect]
     Active Substance: TOFACITINIB CITRATE
     Dosage: 15 MG, 1X/DAY (THREE 5 MG, TABLETS A DAY)
  8. XELJANZ [Suspect]
     Active Substance: TOFACITINIB CITRATE
     Dosage: 5 MG, 3X/DAY
     Route: 048
  9. XELJANZ [Suspect]
     Active Substance: TOFACITINIB CITRATE
     Dosage: 15 MG, 1X/DAY (3 TABLETS, ONCE A DAY)
     Route: 048
  10. XELJANZ [Suspect]
     Active Substance: TOFACITINIB CITRATE
     Dosage: 5 MG, 3X/DAY (I TAKE 5 MG, 3X/DAY)
  11. NALTREXONE [Concomitant]
     Active Substance: NALTREXONE
     Dosage: 5 MG, IN THE EVENING
  12. NALTREXONE [Concomitant]
     Active Substance: NALTREXONE
     Dosage: 10 MG, DAILY, IN THE DAY

REACTIONS (4)
  - Off label use [Unknown]
  - Prescribed overdose [Unknown]
  - Mobility decreased [Unknown]
  - Condition aggravated [Unknown]
